FAERS Safety Report 8098111-5 (Version None)
Quarter: 2012Q1

REPORT INFORMATION
  Report Type: 
  Country: None (occurrence: None)
  Receive Date: 20120128
  Receipt Date: 20110808
  Transmission Date: 20120608
  Serious: No
  Sender: FDA-Public Use
  Company Number: US-ABBOTT-11P-163-0844915-00

PATIENT
  Age: 48 Year
  Sex: Female

DRUGS (7)
  1. VITAMIN D [Concomitant]
     Indication: PRODUCT USED FOR UNKNOWN INDICATION
  2. FISH OIL [Concomitant]
     Indication: PRODUCT USED FOR UNKNOWN INDICATION
  3. NASACORT [Concomitant]
     Indication: HYPERSENSITIVITY
     Dosage: 1 SPRAY EACH NOSTRIL DAILY AS REQUIRED
  4. SYMBICORT [Concomitant]
     Indication: ASTHMA
     Dosage: DAILY AS REQUIRED
  5. VIT E [Concomitant]
     Indication: PRODUCT USED FOR UNKNOWN INDICATION
  6. HUMIRA [Suspect]
     Indication: CROHN'S DISEASE
     Dates: start: 20110712
  7. MULTI-VITAMIN [Concomitant]
     Indication: PRODUCT USED FOR UNKNOWN INDICATION

REACTIONS (2)
  - CONTUSION [None]
  - JOINT SWELLING [None]
